FAERS Safety Report 5280602-3 (Version None)
Quarter: 2007Q1

REPORT INFORMATION
  Report Type: 
  Country: None (occurrence: None)
  Receive Date: 20061215
  Receipt Date: 20060515
  Transmission Date: 20070707
  Serious: Yes (Other)
  Sender: FDA-Public Use
  Company Number: HQWYE353116MAY06

PATIENT
  Age: 81 Year
  Sex: Female
  Weight: 68.1 kg

DRUGS (6)
  1. EFFEXOR XR [Suspect]
     Indication: DEPRESSION
     Dosage: SEE IMAGE
     Route: 048
     Dates: start: 20060101, end: 20060401
  2. EFFEXOR XR [Suspect]
     Indication: DEPRESSION
     Dosage: SEE IMAGE
     Route: 048
     Dates: start: 20060401
  3. MINOXIDIL [Concomitant]
  4. PEPCID [Concomitant]
  5. TRAZODONE HCL [Concomitant]
  6. PERCOCET [Concomitant]

REACTIONS (4)
  - CONVULSION [None]
  - LOSS OF CONSCIOUSNESS [None]
  - MUSCLE RIGIDITY [None]
  - TREMOR [None]
